FAERS Safety Report 5626472-2 (Version None)
Quarter: 2008Q1

REPORT INFORMATION
  Report Type: 
  Country: None (occurrence: None)
  Receive Date: 20080214
  Receipt Date: 20080204
  Transmission Date: 20080703
  Serious: Yes (Other)
  Sender: FDA-Public Use
  Company Number: US-ELI_LILLY_AND_COMPANY-US200802000602

PATIENT
  Sex: Female

DRUGS (1)
  1. FORTEO [Suspect]
     Dates: start: 20070101, end: 20070101

REACTIONS (7)
  - AORTIC VALVE CALCIFICATION [None]
  - CARDIAC VALVE DISEASE [None]
  - DIZZINESS [None]
  - FALL [None]
  - TOOTH DISORDER [None]
  - TOOTHACHE [None]
  - WRIST FRACTURE [None]
